FAERS Safety Report 19513326 (Version 1)
Quarter: 2021Q3

REPORT INFORMATION
  Report Type: Spontaneous
  Country: FI (occurrence: FI)
  Receive Date: 20210709
  Receipt Date: 20210709
  Transmission Date: 20211014
  Serious: Yes (Hospitalization)
  Sender: FDA-Public Use
  Company Number: FI-MYLANLABS-2021M1037403

PATIENT
  Age: 22 Year
  Sex: Female

DRUGS (2)
  1. LEPONEX [Suspect]
     Active Substance: CLOZAPINE
     Dosage: 50 MILLIGRAM, PM
     Dates: start: 202106
  2. LEPONEX [Suspect]
     Active Substance: CLOZAPINE
     Indication: SCHIZOPHRENIA
     Dosage: PM
     Dates: start: 2021

REACTIONS (3)
  - Suicidal ideation [Unknown]
  - Salivary hypersecretion [Unknown]
  - Condition aggravated [Unknown]

NARRATIVE: CASE EVENT DATE: 202106
